FAERS Safety Report 21875065 (Version 2)
Quarter: 2023Q2

REPORT INFORMATION
  Report Type: Report from Study
  Country: US (occurrence: US)
  Receive Date: 20230117
  Receipt Date: 20230613
  Transmission Date: 20230722
  Serious: No
  Sender: FDA-Public Use
  Company Number: US-ABBVIE-22K-163-4464457-00

PATIENT
  Sex: Female

DRUGS (3)
  1. SKYRIZI [Suspect]
     Active Substance: RISANKIZUMAB-RZAA
     Indication: Psoriasis
     Dosage: WEEK ZERO? FORM STRENGTH: 150 MILLIGRAM/MILLILITERS
     Route: 058
     Dates: start: 20220623, end: 20220623
  2. SKYRIZI [Suspect]
     Active Substance: RISANKIZUMAB-RZAA
     Dosage: WEEK FOUR?FORM STRENGTH: 150 MILLIGRAM/MILLILITERS
     Route: 058
     Dates: start: 20220721
  3. SKYRIZI [Suspect]
     Active Substance: RISANKIZUMAB-RZAA
     Dosage: FORM STRENGTH: 150 MILLIGRAM/MILLILITERS
     Route: 058

REACTIONS (8)
  - Nasopharyngitis [Unknown]
  - Fatigue [Unknown]
  - Injection site pruritus [Recovering/Resolving]
  - Ear pruritus [Not Recovered/Not Resolved]
  - Psoriasis [Recovering/Resolving]
  - Pharyngeal swelling [Unknown]
  - Dermatitis contact [Unknown]
  - Ear infection [Unknown]

NARRATIVE: CASE EVENT DATE: 20220101
